FAERS Safety Report 5614168-2 (Version None)
Quarter: 2008Q1

REPORT INFORMATION
  Report Type: 
  Country: None (occurrence: None)
  Receive Date: 20080205
  Receipt Date: 20080201
  Transmission Date: 20080703
  Serious: Yes (Life-Threatening, Hospitalization)
  Sender: FDA-Public Use
  Company Number: B0484448A

PATIENT
  Age: 58 Year
  Sex: Male
  Weight: 66 kg

DRUGS (46)
  1. HEPSERA [Suspect]
     Indication: HEPATIC CIRRHOSIS
     Dosage: 10MG PER DAY
     Route: 048
     Dates: start: 20030221, end: 20060217
  2. ZEFIX [Suspect]
     Indication: DRUG USE FOR UNKNOWN INDICATION
     Dosage: 100MG PER DAY
     Route: 048
     Dates: start: 20010101, end: 20060217
  3. BAKTAR [Concomitant]
     Route: 048
  4. FUROSEMIDE [Concomitant]
     Route: 048
  5. GASTER D [Concomitant]
     Route: 048
  6. LIVACT [Concomitant]
     Route: 048
  7. PL [Concomitant]
     Route: 048
  8. SELTOUCH [Concomitant]
     Route: 062
  9. ALDACTONE [Concomitant]
     Route: 048
  10. DIART [Concomitant]
     Route: 048
  11. LENDORMIN [Concomitant]
     Route: 048
  12. AZUNOL [Concomitant]
     Route: 065
  13. VITAMIN A [Concomitant]
     Route: 061
  14. LIDOMEX [Concomitant]
     Route: 061
  15. PREDNISOLONE [Concomitant]
     Route: 048
  16. MAGMITT [Concomitant]
     Route: 048
  17. MONILAC [Concomitant]
     Route: 048
  18. (TOCLASE) CARBETAPHENTANE [Concomitant]
     Route: 048
  19. BISOLVON [Concomitant]
     Route: 048
  20. LOXONIN [Concomitant]
     Route: 048
  21. UFT [Concomitant]
     Route: 048
  22. CRAVIT [Concomitant]
     Route: 048
  23. ALLOID G [Concomitant]
     Route: 048
  24. DEQUALINIUM CHLORIDE [Concomitant]
  25. AMINOLEBAN EN [Concomitant]
     Route: 048
  26. GLAKAY [Concomitant]
     Route: 048
  27. MOHRUS TAPE [Concomitant]
     Route: 062
  28. INTEBAN [Concomitant]
     Route: 061
  29. NEO-MINOPHAGEN-C [Concomitant]
     Route: 042
  30. ALBUMIN (HUMAN) [Concomitant]
     Route: 042
  31. FUROSEMIDE [Concomitant]
  32. HEPARIN SODIUM INJECTION [Concomitant]
     Route: 042
  33. POTACOL-R [Concomitant]
     Route: 042
  34. SOLDEM 3A [Concomitant]
     Route: 042
  35. VITAMEDIN [Concomitant]
     Route: 042
  36. FUNGUARD [Concomitant]
     Route: 042
  37. MAINTENANCE FLUID [Concomitant]
     Route: 042
  38. KAYTWO N [Concomitant]
     Route: 042
  39. AMINO ACID INJ [Concomitant]
     Route: 042
  40. PREDONINE [Concomitant]
  41. INTRAFAT [Concomitant]
     Route: 042
  42. SOLU-MEDROL [Concomitant]
     Route: 042
  43. SOLULACT [Concomitant]
     Route: 042
  44. XYLOCAINE [Concomitant]
  45. ROPION [Concomitant]
     Route: 042
  46. SOLU-CORTEF [Concomitant]

REACTIONS (2)
  - HEPATITIS B [None]
  - PNEUMOCYSTIS JIROVECI PNEUMONIA [None]
